FAERS Safety Report 5017993-4 (Version None)
Quarter: 2006Q2

REPORT INFORMATION
  Report Type: 
  Country: None (occurrence: None)
  Receive Date: 20060530
  Receipt Date: 20050316
  Transmission Date: 20061013
  Serious: Yes (Other)
  Sender: FDA-Public Use
  Company Number: 2005046123

PATIENT
  Age: 68 Year
  Sex: Male
  Weight: 70 kg

DRUGS (16)
  1. LYRICA [Suspect]
     Indication: PAIN
     Dosage: 300 MG (150 MG, 2 IN 1 D), ORAL
     Route: 048
     Dates: start: 20050210, end: 20050303
  2. ENALAPRIL [Concomitant]
  3. ACETYLSALICYLIC ACID SRT [Concomitant]
  4. DIPYRIDAMOLE [Concomitant]
  5. GAVISCON [Concomitant]
  6. OMEPRAZOLE [Concomitant]
  7. DILTIAZEM [Concomitant]
  8. ISOSORBIDE MONONITRATE [Concomitant]
  9. GLYCERYL TRINITRATE [Concomitant]
  10. SIMVASTATIN [Concomitant]
  11. LEVOKIT CA (CALCIUM CARBONATE, COLECALCIFEROL) [Concomitant]
  12. PARACETAMOL [Concomitant]
  13. HYPROMELLOSE [Concomitant]
  14. DIHYDROCODEINE [Concomitant]
  15. AMITRIPTYLINE HCL [Concomitant]
  16. CITALOPRAM HYDROBROMIDE [Concomitant]

REACTIONS (2)
  - GAMMA-GLUTAMYLTRANSFERASE INCREASED [None]
  - HEPATIC FUNCTION ABNORMAL [None]
